FAERS Safety Report 9814966 (Version 1)
Quarter: 2014Q1

REPORT INFORMATION
  Report Type: Report from Study
  Country: PA (occurrence: PA)
  Receive Date: 20140113
  Receipt Date: 20140113
  Transmission Date: 20141002
  Serious: Yes (Death, Hospitalization)
  Sender: FDA-Public Use
  Company Number: PA-ROCHE-1331530

PATIENT
  Sex: Female

DRUGS (4)
  1. BONVIVA [Suspect]
     Indication: OSTEOPOROSIS
     Route: 048
     Dates: start: 20110306
  2. LYRICA [Concomitant]
     Indication: EPILEPSY
  3. PHENOBARBITAL [Concomitant]
     Indication: EPILEPSY
  4. STUGERON [Concomitant]
     Indication: CARDIOVASCULAR EVENT PROPHYLAXIS

REACTIONS (3)
  - Respiratory disorder [Fatal]
  - Hip fracture [Unknown]
  - Fall [Unknown]
